FAERS Safety Report 7444371-0 (Version None)
Quarter: 2011Q2

REPORT INFORMATION
  Report Type: 
  Country: None (occurrence: None)
  Receive Date: 20110427
  Receipt Date: 20110427
  Transmission Date: 20111010
  Serious: Yes (Disabling)
  Sender: FDA-Public Use
  Company Number: None

PATIENT
  Sex: Female

DRUGS (1)
  1. RECLAST [Suspect]
     Indication: OSTEOPOROSIS
     Dosage: 5MG YEARLY INTRA-ARTERIAL
     Route: 013
     Dates: start: 20090803, end: 20101001

REACTIONS (2)
  - TIBIA FRACTURE [None]
  - STRESS FRACTURE [None]
